FAERS Safety Report 26203239 (Version 1)
Quarter: 2025Q4

REPORT INFORMATION
  Report Type: Spontaneous
  Country: US (occurrence: US)
  Receive Date: 20251226
  Receipt Date: 20251226
  Transmission Date: 20260118
  Serious: Yes (Hospitalization, Other)
  Sender: LUPIN
  Company Number: US-LUPIN PHARMACEUTICALS INC.-2025-11612

PATIENT
  Age: 79 Year
  Sex: Female

DRUGS (3)
  1. LEVOTHYROXINE [Suspect]
     Active Substance: LEVOTHYROXINE
     Indication: Hypothyroidism
     Dosage: 100 MCG (PATIENT WAS INADVERTENTLY TAKING BOTH 100 MCG AND 88 MCG OF HER LEVOTHYROXINE-SODIUM PRESCRIPTIONS)
     Route: 065
  2. LEVOTHYROXINE [Suspect]
     Active Substance: LEVOTHYROXINE
     Dosage: 88 MCG (PATIENT WAS INADVERTENTLY TAKING BOTH 100 MCG AND 88 MCG OF HER LEVOTHYROXINE-SODIUM PRESCRIPTIONS)
     Route: 065
  3. ELIQUIS [Suspect]
     Active Substance: APIXABAN
     Indication: Product used for unknown indication
     Dosage: UNK
     Route: 065

REACTIONS (8)
  - Hyperthyroidism [Recovering/Resolving]
  - Thyrotoxic crisis [Recovering/Resolving]
  - Accidental overdose [Unknown]
  - Metabolic acidosis [Recovering/Resolving]
  - Encephalopathy [Recovering/Resolving]
  - Cardiac failure [Recovering/Resolving]
  - Product prescribing issue [Unknown]
  - Treatment noncompliance [Unknown]
